FAERS Safety Report 11681571 (Version 3)
Quarter: 2015Q4

REPORT INFORMATION
  Report Type: Spontaneous
  Country: US (occurrence: US)
  Receive Date: 20151029
  Receipt Date: 20151117
  Transmission Date: 20160304
  Serious: No
  Sender: FDA-Public Use
  Company Number: US-PFIZER INC-2015362127

PATIENT
  Age: 59 Year
  Sex: Male
  Weight: 86 kg

DRUGS (5)
  1. LYRICA [Suspect]
     Active Substance: PREGABALIN
     Dosage: 300 MG, 1X/DAY
     Route: 048
  2. GABAPENTIN. [Suspect]
     Active Substance: GABAPENTIN
     Indication: NEURALGIA
     Dosage: 5 PILLS IN THE MORNING AND 5 PILLS IN THE EVENING
  3. LYRICA [Suspect]
     Active Substance: PREGABALIN
     Indication: NEURALGIA
     Dosage: 300 MG, 2X/DAY. ONE IN THE MORNING AND ONE IN THE EVENING
     Route: 048
  4. GABAPENTIN. [Suspect]
     Active Substance: GABAPENTIN
     Dosage: 5 DF, 1X/DAY
  5. ALEVE [Concomitant]
     Active Substance: NAPROXEN SODIUM
     Dosage: OCCASIONAL

REACTIONS (5)
  - Dysarthria [Unknown]
  - Sciatica [Unknown]
  - Drug ineffective [Not Recovered/Not Resolved]
  - Burning sensation [Unknown]
  - Feeling abnormal [Unknown]
